FAERS Safety Report 26134335 (Version 1)
Quarter: 2025Q4

REPORT INFORMATION
  Report Type: Other
  Country: GB (occurrence: GB)
  Receive Date: 20251209
  Receipt Date: 20251209
  Transmission Date: 20260118
  Serious: Yes (Death, Hospitalization, Other)
  Sender: STRIDES
  Company Number: GB-SANDOZ-SDZ2025GB020015

PATIENT
  Sex: Female

DRUGS (3)
  1. MYCOPHENOLATE MOFETIL [Suspect]
     Active Substance: MYCOPHENOLATE MOFETIL
     Indication: Immunosuppressant drug therapy
     Dosage: 5 MG (50 ASC) TABLET
     Route: 065
  2. PREDNISOLONE [Suspect]
     Active Substance: PREDNISOLONE
     Indication: Immunosuppressant drug therapy
     Dosage: 5 MG (TAB 28 ACC) TABLET
     Route: 065
  3. TACROLIMUS [Suspect]
     Active Substance: TACROLIMUS
     Indication: Immunosuppressant drug therapy
     Dosage: 0.75 MG, BID (50 CAPSULES) CAPSULE, HARD
     Route: 048

REACTIONS (2)
  - Death [Fatal]
  - Hospitalisation [Unknown]
